FAERS Safety Report 16504848 (Version 1)
Quarter: 2019Q3

REPORT INFORMATION
  Report Type: Spontaneous
  Country: US (occurrence: US)
  Receive Date: 20190701
  Receipt Date: 20190701
  Transmission Date: 20191004
  Serious: No
  Sender: FDA-Public Use
  Company Number: US-PFM-2018-05652

PATIENT
  Age: 5 Month
  Sex: Female

DRUGS (3)
  1. HEMANGEOL [Suspect]
     Active Substance: PROPRANOLOL HYDROCHLORIDE
     Dosage: 2.2 ML, BID (2/DAY), EVERY 12 HOURS
     Route: 048
     Dates: start: 20180410
  2. HEMANGEOL [Suspect]
     Active Substance: PROPRANOLOL HYDROCHLORIDE
     Dosage: 3.1 ML, BID (2/DAY), EVERY 12 HOURS
     Route: 048
     Dates: start: 20180417
  3. HEMANGEOL [Suspect]
     Active Substance: PROPRANOLOL HYDROCHLORIDE
     Indication: INFANTILE HAEMANGIOMA
     Dosage: 0.9 ML, BID (2/DAY), EVERY 12 HOURS
     Route: 048
     Dates: start: 20180309

REACTIONS (1)
  - Diarrhoea [Not Recovered/Not Resolved]
